FAERS Safety Report 13213518 (Version 1)
Quarter: 2017Q1

REPORT INFORMATION
  Report Type: Spontaneous
  Country: US (occurrence: US)
  Receive Date: 20170210
  Receipt Date: 20170210
  Transmission Date: 20170428
  Serious: No
  Sender: FDA-Public Use
  Company Number: US-PERRIGO-16US016977

PATIENT
  Age: 80 Year
  Sex: Female
  Weight: 80.73 kg

DRUGS (4)
  1. ANTIHYPERTENSIVES [Concomitant]
     Active Substance: UNSPECIFIED INGREDIENT
     Indication: HYPERTENSION
     Dosage: UNK
     Route: 048
  2. TRETINOIN. [Suspect]
     Active Substance: TRETINOIN
     Indication: CHLOASMA
     Dosage: 1/2 INCH, QHS
     Route: 061
     Dates: start: 20160524
  3. TRETINOIN. [Suspect]
     Active Substance: TRETINOIN
     Indication: SKIN WRINKLING
  4. LIPID MODIFYING AGENTS [Concomitant]
     Active Substance: UNSPECIFIED INGREDIENT
     Indication: BLOOD CHOLESTEROL INCREASED
     Dosage: UNK
     Route: 048

REACTIONS (5)
  - Application site pruritus [Not Recovered/Not Resolved]
  - Application site irritation [Not Recovered/Not Resolved]
  - Off label use [Not Recovered/Not Resolved]
  - Application site pain [Not Recovered/Not Resolved]
  - Application site discolouration [Recovered/Resolved]

NARRATIVE: CASE EVENT DATE: 201605
